FAERS Safety Report 14476951 (Version 2)
Quarter: 2018Q3

REPORT INFORMATION
  Report Type: Report from Study
  Country: US (occurrence: US)
  Receive Date: 20180201
  Receipt Date: 20180723
  Transmission Date: 20181010
  Serious: No
  Sender: FDA-Public Use
  Company Number: US-EXELIXIS-CABO-17009982

PATIENT
  Sex: Female

DRUGS (14)
  1. TRAMADOL. [Concomitant]
     Active Substance: TRAMADOL
  2. MOMETASONE [Concomitant]
     Active Substance: MOMETASONE
  3. CABOMETYX [Suspect]
     Active Substance: CABOZANTINIB S-MALATE
     Indication: PRODUCT USED FOR UNKNOWN INDICATION
     Dosage: 60 MG, QD
     Route: 048
     Dates: start: 20170727
  4. SENOKOT [Concomitant]
     Active Substance: SENNOSIDES
  5. PEPCID [Concomitant]
     Active Substance: FAMOTIDINE
  6. LEVOTHYROXINE. [Concomitant]
     Active Substance: LEVOTHYROXINE
  7. LISINOPRIL. [Concomitant]
     Active Substance: LISINOPRIL
  8. LACTULOSE. [Concomitant]
     Active Substance: LACTULOSE
  9. MORPHINE [Concomitant]
     Active Substance: MORPHINE
  10. REGENECARE HA [Concomitant]
     Active Substance: LIDOCAINE HYDROCHLORIDE
  11. DEXAMETHASONE. [Concomitant]
     Active Substance: DEXAMETHASONE
  12. ONDANSETRON [Concomitant]
     Active Substance: ONDANSETRON
  13. NYSTATIN. [Concomitant]
     Active Substance: NYSTATIN
  14. ILEVRO [Concomitant]
     Active Substance: NEPAFENAC

REACTIONS (14)
  - Paraesthesia [Unknown]
  - Rash generalised [Not Recovered/Not Resolved]
  - Palmar-plantar erythrodysaesthesia syndrome [Not Recovered/Not Resolved]
  - Vomiting [Unknown]
  - Nausea [Not Recovered/Not Resolved]
  - Dysgeusia [Unknown]
  - Cough [Not Recovered/Not Resolved]
  - Weight increased [Unknown]
  - Alopecia [Unknown]
  - Decreased appetite [Not Recovered/Not Resolved]
  - Stomatitis [Unknown]
  - Blister [Not Recovered/Not Resolved]
  - Fatigue [Not Recovered/Not Resolved]
  - Headache [Not Recovered/Not Resolved]
